FAERS Safety Report 24908794 (Version 1)
Quarter: 2025Q1

REPORT INFORMATION
  Report Type: Spontaneous
  Country: AU (occurrence: AU)
  Receive Date: 20250131
  Receipt Date: 20250131
  Transmission Date: 20250409
  Serious: Yes (Other)
  Sender: ALKEM
  Company Number: AU-ALKEM LABORATORIES LIMITED-AU-ALKEM-2025-00872

PATIENT
  Age: 54 Year
  Sex: Female

DRUGS (2)
  1. METFORMIN HYDROCHLORIDE [Suspect]
     Active Substance: METFORMIN HYDROCHLORIDE
     Indication: Product used for unknown indication
     Route: 065
  2. KESIMPTA [Suspect]
     Active Substance: OFATUMUMAB
     Indication: Product used for unknown indication
     Route: 065

REACTIONS (14)
  - Paralysis [Unknown]
  - Alopecia [Unknown]
  - Anal incontinence [Unknown]
  - COVID-19 [Unknown]
  - Dry skin [Unknown]
  - Feeling cold [Unknown]
  - Gait inability [Unknown]
  - Hypoaesthesia [Unknown]
  - Nail ridging [Unknown]
  - Nervousness [Unknown]
  - Paraesthesia [Unknown]
  - Pruritus [Unknown]
  - Diarrhoea [Unknown]
  - Headache [Unknown]
